FAERS Safety Report 11510402 (Version 1)
Quarter: 2015Q3

REPORT INFORMATION
  Report Type: Spontaneous
  Country: IN (occurrence: IN)
  Receive Date: 20150915
  Receipt Date: 20150915
  Transmission Date: 20151125
  Serious: Yes (Death, Other)
  Sender: FDA-Public Use
  Company Number: IN-ALEMBIC PHARMACUETICALS LIMITED-2015SCAL000582

PATIENT

DRUGS (11)
  1. LEFLUNOMIDE. [Suspect]
     Active Substance: LEFLUNOMIDE
     Dosage: 10 MG, EVERY OTHER DAY (MAINTENANCE DOSE), WEIGHT: LESS THAN 20 KG
     Route: 048
  2. LEFLUNOMIDE. [Suspect]
     Active Substance: LEFLUNOMIDE
     Dosage: 100 MG, FOR THREE DAYS, WEIGHT: 40 KG
     Route: 048
  3. METHOTREXATE [Concomitant]
     Active Substance: METHOTREXATE
     Dosage: 10 MG/M2/WEEK
     Route: 058
  4. FOLIC ACID. [Concomitant]
     Active Substance: FOLIC ACID
     Indication: DRUG TOXICITY PROPHYLAXIS
     Dosage: 1.25 MG, QD
  5. LEFLUNOMIDE. [Suspect]
     Active Substance: LEFLUNOMIDE
     Dosage: 100 MG, FOR TWO DAYS, WEIGHT: 20 AND 40 KG
     Route: 048
  6. PREDNISOLONE. [Concomitant]
     Active Substance: PREDNISOLONE
     Indication: PRODUCT USED FOR UNKNOWN INDICATION
     Dosage: 0.275 MG/KG, MAINTENANCE THERAPY
  7. LEFLUNOMIDE. [Suspect]
     Active Substance: LEFLUNOMIDE
     Dosage: 10 MG, QD (MAINTENANCE DOSE) WEIGHT: 20 AND 40 KG
     Route: 048
  8. LEFLUNOMIDE. [Suspect]
     Active Substance: LEFLUNOMIDE
     Dosage: 20 MG, QD (MAINTENANCE DOSE), WEIGHT: 40 KG
  9. METHOTREXATE [Concomitant]
     Active Substance: METHOTREXATE
     Indication: JUVENILE IDIOPATHIC ARTHRITIS
     Dosage: 15 MG/M2/WEEK, FOR ATLEAST 3 MONTHS
     Route: 058
  10. PREDNISOLONE. [Concomitant]
     Active Substance: PREDNISOLONE
     Dosage: 30 MG/KG, UNK
  11. LEFLUNOMIDE. [Suspect]
     Active Substance: LEFLUNOMIDE
     Indication: JUVENILE IDIOPATHIC ARTHRITIS
     Dosage: 100 MG, QD (LOADING DOSE), WEIGHT: LESS THAN 20 KG
     Route: 048

REACTIONS (6)
  - Hepatic enzyme increased [Unknown]
  - Hepatitis A [Unknown]
  - Gastritis [Unknown]
  - Drug ineffective for unapproved indication [Unknown]
  - Histiocytosis haematophagic [Fatal]
  - Acute hepatic failure [Fatal]
